FAERS Safety Report 8460368-6 (Version None)
Quarter: 2012Q2

REPORT INFORMATION
  Report Type: 
  Country: None (occurrence: None)
  Receive Date: 20120622
  Receipt Date: 20120614
  Transmission Date: 20120825
  Serious: Yes (Hospitalization, Other)
  Sender: FDA-Public Use
  Company Number: DE-ABBOTT-12P-062-0946651-00

PATIENT
  Age: 61 Year
  Sex: Male

DRUGS (1)
  1. HUMIRA [Suspect]
     Indication: PROSTATIC SPECIFIC ANTIGEN
     Route: 058
     Dates: start: 20111201, end: 20120401

REACTIONS (8)
  - BASILAR ARTERY STENOSIS [None]
  - HYPERTHYROIDISM [None]
  - VISUAL ACUITY REDUCED [None]
  - TEMPORAL ARTERITIS [None]
  - PHOTOSENSITIVITY REACTION [None]
  - CEREBRAL ARTERY STENOSIS [None]
  - MACROANGIOPATHY [None]
  - HEADACHE [None]
